FAERS Safety Report 4264056-1 (Version None)
Quarter: 2004Q1

REPORT INFORMATION
  Report Type: 
  Country: None (occurrence: None)
  Receive Date: 20040102
  Receipt Date: 20031224
  Transmission Date: 20041129
  Serious: Yes (Other)
  Sender: FDA-Public Use
  Company Number: US-JNJFOC-20031205279

PATIENT
  Age: 82 Year
  Sex: Female

DRUGS (11)
  1. INFLIXIMAB (INFLIXIMAB, RECOMBINANT) LYOPHILIZED POWDER [Suspect]
     Indication: RHEUMATOID ARTHRITIS
     Dosage: INTRAVENOUS
     Route: 042
     Dates: start: 20010223
  2. ALLEGRA [Concomitant]
  3. CALTRATE (CALCIUM CARBONATE) [Concomitant]
  4. FLUOXETINE [Concomitant]
  5. FOLIC ACID [Concomitant]
  6. MULTIVITAMIN (MULTIVITAMINS) [Concomitant]
  7. NORVASC [Concomitant]
  8. METHOTREXATE [Concomitant]
  9. ACIPHEX [Concomitant]
  10. TYLENOL [Concomitant]
  11. TYLENOL PM (TYLENOL PM) [Concomitant]

REACTIONS (1)
  - BASAL CELL CARCINOMA [None]
